FAERS Safety Report 12905085 (Version 1)
Quarter: 2016Q4

REPORT INFORMATION
  Report Type: Spontaneous
  Country: US (occurrence: US)
  Receive Date: 20161102
  Receipt Date: 20161102
  Transmission Date: 20170207
  Serious: No
  Sender: FDA-Public Use
  Company Number: US-ASTRAZENECA-2016SF08841

PATIENT
  Age: 75 Year
  Sex: Female
  Weight: 59.4 kg

DRUGS (7)
  1. METOPROLOL SUCCINATE. [Suspect]
     Active Substance: METOPROLOL SUCCINATE
     Indication: CARDIAC DISORDER
     Route: 048
     Dates: start: 2007
  2. OMEPRAZOLE. [Suspect]
     Active Substance: OMEPRAZOLE
     Route: 048
     Dates: start: 20151201
  3. OMEPRAZOLE. [Suspect]
     Active Substance: OMEPRAZOLE
     Route: 048
  4. FLAXSEED [Concomitant]
     Active Substance: FLAX SEED
     Dosage: 1000 MG WITH OIL IN IT IN MORING
  5. CENTRUM SILVER [Suspect]
     Active Substance: MINERALS\VITAMINS
     Dosage: ONE TABLET BY MOUTH
     Route: 048
     Dates: start: 20071001
  6. CALCIUM 600 [Concomitant]
     Dosage: ONE TABLET A DAY
  7. CENTRUM MULTIVITAMIN/MULTIMINERAL SUPPLEMENT [Suspect]
     Active Substance: MINERALS\VITAMINS
     Dosage: ONE TABLTE A DAY
     Route: 048

REACTIONS (1)
  - Chromaturia [Not Recovered/Not Resolved]

NARRATIVE: CASE EVENT DATE: 2010
